FAERS Safety Report 15949318 (Version 3)
Quarter: 2025Q4

REPORT INFORMATION
  Report Type: Report from Study
  Country: GB (occurrence: GB)
  Receive Date: 20190212
  Receipt Date: 20251227
  Transmission Date: 20260118
  Serious: Yes (Life-Threatening, Hospitalization, Other)
  Sender: AUROBINDO
  Company Number: GB-AUROBINDO-08-AUR-03534

PATIENT
  Age: 20 Year
  Sex: Female
  Weight: 54 kg

DRUGS (1)
  1. ACETAMINOPHEN [Suspect]
     Active Substance: ACETAMINOPHEN
     Indication: Product used for unknown indication
     Dosage: UNK
     Route: 061

REACTIONS (11)
  - Acute hepatic failure [Unknown]
  - Overdose [Unknown]
  - Renal failure [Unknown]
  - Pleural effusion [Unknown]
  - Pulmonary sepsis [Unknown]
  - Pulmonary embolism [Unknown]
  - Hepatic vein thrombosis [Unknown]
  - Impaired healing [Unknown]
  - Transplant dysfunction [Unknown]
  - Sinus disorder [Unknown]
  - Venoocclusive liver disease [Unknown]
